FAERS Safety Report 12647197 (Version 1)
Quarter: 2016Q3

REPORT INFORMATION
  Report Type: Spontaneous
  Country: US (occurrence: None)
  Receive Date: 20160811
  Receipt Date: 20160811
  Transmission Date: 20161109
  Serious: Yes (Life-Threatening, Other)
  Sender: FDA-Public Use
  Company Number: None

PATIENT
  Age: 70 Year
  Sex: Male
  Weight: 95.26 kg

DRUGS (7)
  1. LOSARTAN. [Suspect]
     Active Substance: LOSARTAN
     Indication: ATRIAL FIBRILLATION
     Route: 048
     Dates: start: 20160731, end: 20160801
  2. VALSARTAN. [Suspect]
     Active Substance: VALSARTAN
  3. ASPIRIN. [Concomitant]
     Active Substance: ASPIRIN
  4. CAERVEDILOL [Concomitant]
  5. DOFETILIDE. [Concomitant]
     Active Substance: DOFETILIDE
  6. SYNTHROID [Concomitant]
     Active Substance: LEVOTHYROXINE SODIUM
  7. MULTIVITAMIN [Concomitant]
     Active Substance: VITAMINS

REACTIONS (3)
  - Blood pressure increased [None]
  - Hypoaesthesia [None]
  - Loss of consciousness [None]

NARRATIVE: CASE EVENT DATE: 20160731
